FAERS Safety Report 20065693 (Version 1)
Quarter: 2021Q4

REPORT INFORMATION
  Report Type: Report from Study
  Country: BR (occurrence: BR)
  Receive Date: 20211113
  Receipt Date: 20211113
  Transmission Date: 20220303
  Serious: Yes (Hospitalization, Other)
  Sender: FDA-Public Use
  Company Number: BR-NOVARTISPH-NVSC2021BR254932

PATIENT
  Age: 67 Year
  Sex: Female

DRUGS (3)
  1. LETROZOLE [Suspect]
     Active Substance: LETROZOLE
     Indication: Product used for unknown indication
     Dosage: UNK
     Route: 065
  2. DENOSUMAB [Concomitant]
     Active Substance: DENOSUMAB
     Indication: Product used for unknown indication
     Dosage: UNK
     Route: 065
     Dates: start: 202010
  3. EXEMESTANE [Concomitant]
     Active Substance: EXEMESTANE
     Indication: Product used for unknown indication
     Dosage: UNK
     Route: 065
     Dates: start: 202010

REACTIONS (8)
  - Sepsis [Unknown]
  - Cellulitis [Unknown]
  - Osteolysis [Unknown]
  - Spinal cord compression [Unknown]
  - Respiratory tract infection [Unknown]
  - Breast cancer [Unknown]
  - Plasma cell myeloma [Unknown]
  - Bone lesion [Unknown]

NARRATIVE: CASE EVENT DATE: 20201101
